FAERS Safety Report 7769833-8 (Version None)
Quarter: 2011Q3

REPORT INFORMATION
  Report Type: 
  Country: None (occurrence: None)
  Receive Date: 20110922
  Receipt Date: 20110331
  Transmission Date: 20111222
  Serious: No
  Sender: FDA-Public Use
  Company Number: US-ASTRAZENECA-2011SE18499

PATIENT
  Age: 52 Year
  Sex: Male
  Weight: 83.9 kg

DRUGS (6)
  1. PROZAC [Concomitant]
     Indication: DEPRESSION
  2. SEROQUEL XR [Suspect]
     Indication: OBSESSIVE-COMPULSIVE DISORDER
     Route: 048
  3. SEROQUEL XR [Suspect]
     Indication: DEPRESSION
     Route: 048
  4. PROZAC [Concomitant]
     Indication: OBSESSIVE-COMPULSIVE DISORDER
  5. SEROQUEL XR [Suspect]
     Indication: ANXIETY
     Route: 048
  6. PROZAC [Concomitant]
     Indication: ANXIETY

REACTIONS (2)
  - DRUG DOSE OMISSION [None]
  - INSOMNIA [None]
